FAERS Safety Report 7475548-6 (Version None)
Quarter: 2011Q2

REPORT INFORMATION
  Report Type: 
  Country: None (occurrence: None)
  Receive Date: 20110510
  Receipt Date: 20110510
  Transmission Date: 20111010
  Serious: Yes (Other)
  Sender: FDA-Public Use
  Company Number: None

PATIENT
  Age: 44 Year
  Sex: Female
  Weight: 144.2439 kg

DRUGS (3)
  1. CIPROFLOXACIN [Suspect]
     Indication: URINARY TRACT INFECTION
     Dosage: 1 TABLET TWICE DAILY PO 1 AT 8:30 AM ONLY
     Route: 048
     Dates: start: 20110507, end: 20110507
  2. TRAMADOL HCL [Suspect]
     Indication: PAIN
     Dosage: 2 TABLETS 6 HOURS PO 2 ON 5/7 AM; 1 ON 5/9
     Route: 048
     Dates: start: 20110507, end: 20110509
  3. TRAMADOL HCL [Suspect]
     Indication: BACK PAIN
     Dosage: 2 TABLETS 6 HOURS PO 2 ON 5/7 AM; 1 ON 5/9
     Route: 048
     Dates: start: 20110507, end: 20110509

REACTIONS (4)
  - VISION BLURRED [None]
  - HEADACHE [None]
  - MUSCULOSKELETAL STIFFNESS [None]
  - NAUSEA [None]
